FAERS Safety Report 5814267-6 (Version None)
Quarter: 2008Q3

REPORT INFORMATION
  Report Type: 
  Country: None (occurrence: None)
  Receive Date: 20080717
  Receipt Date: 20080708
  Transmission Date: 20090109
  Serious: Yes (Life-Threatening, Hospitalization)
  Sender: FDA-Public Use
  Company Number: BR-ELI_LILLY_AND_COMPANY-BR200805005051

PATIENT
  Age: 50 Year
  Sex: Female
  Weight: 50 kg

DRUGS (7)
  1. HUMULIN N [Suspect]
     Indication: TYPE 2 DIABETES MELLITUS
     Dosage: 10 IU, 2/D
     Route: 058
  2. TAMOXIFEN CITRATE [Concomitant]
     Indication: NEOPLASM
     Dosage: 20 MG, DAILY (1/D)
     Route: 048
  3. SIMVASTATIN [Concomitant]
     Indication: BLOOD CHOLESTEROL
     Dosage: 40 MG, DAILY (1/D)
     Route: 048
  4. ASPIRIN [Concomitant]
     Indication: CARDIOMYOPATHY
     Dosage: 100 MG, DAILY (1/D)
     Route: 048
  5. LASIX [Concomitant]
     Indication: HYPERTENSION
     Dosage: 20 MG, DAILY (1/D)
     Route: 065
  6. TICLIDIL [Concomitant]
     Indication: CARDIOMYOPATHY
     Dosage: 250 MG, 2/D
     Route: 048
  7. NOVORAPID [Concomitant]
     Indication: DIABETES MELLITUS
     Dosage: 3 IU, DAILY (1/D)
     Route: 058

REACTIONS (3)
  - DEPRESSION [None]
  - INFARCTION [None]
  - SENSORY DISTURBANCE [None]
